FAERS Safety Report 4828980-0 (Version None)
Quarter: 2005Q4

REPORT INFORMATION
  Report Type: 
  Country: None (occurrence: None)
  Receive Date: 20051014
  Receipt Date: 20050823
  Transmission Date: 20060501
  Serious: No
  Sender: FDA-Public Use
  Company Number: 2005SP002473

PATIENT
  Age: 57 Year
  Sex: Male

DRUGS (3)
  1. LUNESTA [Suspect]
     Indication: SLEEP DISORDER
     Dosage: 3 MG;HS;ORAL
     Route: 048
     Dates: start: 20050813, end: 20050819
  2. LEXAPRO [Concomitant]
  3. TRILEPTAL [Concomitant]

REACTIONS (1)
  - DRUG EFFECT DECREASED [None]
